FAERS Safety Report 8555458-3 (Version None)
Quarter: 2012Q3

REPORT INFORMATION
  Report Type: 
  Country: None (occurrence: None)
  Receive Date: 20120731
  Receipt Date: 20120406
  Transmission Date: 20120928
  Serious: Yes (Hospitalization)
  Sender: FDA-Public Use
  Company Number: US-ASTRAZENECA-2011SE13017

PATIENT
  Age: 71 Year
  Sex: Female

DRUGS (3)
  1. SEROQUEL XR [Suspect]
     Indication: BIPOLAR I DISORDER
     Dosage: 50 MG EARLY EVENING AND 50 MG AT NIGHT
     Route: 048
     Dates: start: 20101201
  2. PRISTIQ [Concomitant]
  3. LAMICTAL [Concomitant]

REACTIONS (5)
  - DRUG INEFFECTIVE [None]
  - DIZZINESS [None]
  - BIPOLAR DISORDER [None]
  - FALL [None]
  - FRACTURED COCCYX [None]
